FAERS Safety Report 18277067 (Version 1)
Quarter: 2020Q3

REPORT INFORMATION
  Report Type: Spontaneous
  Country: US (occurrence: US)
  Receive Date: 20200916
  Receipt Date: 20200916
  Transmission Date: 20201103
  Serious: No
  Sender: FDA-Public Use
  Company Number: None

PATIENT
  Age: 30 Year
  Sex: Female
  Weight: 72 kg

DRUGS (2)
  1. UBRELVY [Suspect]
     Active Substance: UBROGEPANT
     Indication: MIGRAINE
     Dosage: ?          QUANTITY:1 TABLET(S);?
     Route: 048
     Dates: start: 20200915, end: 20200916
  2. AJOVY [Concomitant]
     Active Substance: FREMANEZUMAB-VFRM

REACTIONS (5)
  - Musculoskeletal stiffness [None]
  - Neck pain [None]
  - Paraesthesia [None]
  - Muscle spasms [None]
  - Skin warm [None]

NARRATIVE: CASE EVENT DATE: 20200915
